FAERS Safety Report 14059898 (Version 1)
Quarter: 2017Q4

REPORT INFORMATION
  Report Type: Report from Study
  Country: US (occurrence: US)
  Receive Date: 20171006
  Receipt Date: 20171006
  Transmission Date: 20180321
  Serious: No
  Sender: FDA-Public Use
  Company Number: US-AMGEN-USASL2017039917

PATIENT
  Age: 83 Year
  Sex: Female
  Weight: 74.38 kg

DRUGS (14)
  1. COZAAR [Concomitant]
     Active Substance: LOSARTAN POTASSIUM
     Indication: BLOOD PRESSURE ABNORMAL
     Dosage: 100 MG, QD
     Route: 048
  2. LASIX [Concomitant]
     Active Substance: FUROSEMIDE
     Dosage: 40 MG, QD
     Route: 048
  3. AMARYL [Concomitant]
     Active Substance: GLIMEPIRIDE
     Indication: DIABETES MELLITUS
     Dosage: 2 MG, QD
     Route: 048
  4. FLOVENT [Concomitant]
     Active Substance: FLUTICASONE PROPIONATE
     Dosage: 110 MUG, Q12H
     Route: 045
  5. INFLUENZA VACCINE [Concomitant]
     Active Substance: INFLUENZA VIRUS VACCINE
     Dosage: UNK
     Dates: start: 20160901
  6. PROLIA [Suspect]
     Active Substance: DENOSUMAB
     Indication: OSTEOPENIA
     Dosage: 60 MG, Q6MO
     Route: 058
  7. TOPROL XL [Concomitant]
     Active Substance: METOPROLOL SUCCINATE
     Indication: BLOOD PRESSURE ABNORMAL
     Dosage: 50 MG, UNK
     Route: 048
  8. PRILOSEC [Concomitant]
     Active Substance: OMEPRAZOLE MAGNESIUM
     Indication: OESOPHAGEAL STENOSIS
     Dosage: 20 MG, QD
     Route: 048
  9. TYLENOL [Concomitant]
     Active Substance: ACETAMINOPHEN
     Dosage: 500 MG, AS NECESSARY
     Route: 048
  10. ALDACTONE [Concomitant]
     Active Substance: SPIRONOLACTONE
     Indication: BLOOD PRESSURE ABNORMAL
     Dosage: 25 MG, QD
     Route: 048
  11. MAG-OX [Concomitant]
     Active Substance: MAGNESIUM OXIDE
     Dosage: 400 MG, QD
     Route: 048
  12. FORTAMET [Concomitant]
     Active Substance: METFORMIN HYDROCHLORIDE
     Indication: DIABETES MELLITUS
     Dosage: 1000 MG, BID
     Route: 048
  13. NORVASC [Concomitant]
     Active Substance: AMLODIPINE BESYLATE
     Indication: BLOOD PRESSURE ABNORMAL
     Dosage: 10 MG, QD
     Route: 048
  14. LEVOXYL [Concomitant]
     Active Substance: LEVOTHYROXINE SODIUM
     Dosage: 50 MUG, UNK
     Route: 048

REACTIONS (11)
  - Incontinence [Unknown]
  - Dyspepsia [Unknown]
  - Pain in extremity [Not Recovered/Not Resolved]
  - Off label use [Unknown]
  - Cardiovascular disorder [Unknown]
  - Cough [Unknown]
  - Chest pain [Unknown]
  - Neuropathy peripheral [Unknown]
  - Blood pressure abnormal [Unknown]
  - Hypercalcaemia [Unknown]
  - Vitamin D deficiency [Recovering/Resolving]

NARRATIVE: CASE EVENT DATE: 201612
